FAERS Safety Report 7448930-0 (Version None)
Quarter: 2011Q2

REPORT INFORMATION
  Report Type: 
  Country: None (occurrence: None)
  Receive Date: 20110429
  Receipt Date: 20100831
  Transmission Date: 20111010
  Serious: No
  Sender: FDA-Public Use
  Company Number: US-ASTRAZENECA-2010SE40916

PATIENT
  Sex: Male

DRUGS (2)
  1. BONINE [Interacting]
     Route: 065
  2. NEXIUM [Suspect]
     Route: 048

REACTIONS (2)
  - DRUG INTERACTION [None]
  - GASTROOESOPHAGEAL REFLUX DISEASE [None]
